FAERS Safety Report 7599537-6 (Version None)
Quarter: 2011Q3

REPORT INFORMATION
  Report Type: 
  Country: None (occurrence: None)
  Receive Date: 20110711
  Receipt Date: 20110623
  Transmission Date: 20111222
  Serious: Yes (Other)
  Sender: FDA-Public Use
  Company Number: FR-BAYER-2011-047824

PATIENT
  Age: 69 Year
  Sex: Male
  Weight: 96 kg

DRUGS (1)
  1. ASPIRIN [Suspect]
     Indication: HAEMODILUTION
     Dosage: UNK
     Dates: start: 20070101, end: 20110301

REACTIONS (3)
  - HAEMORRHAGE [None]
  - FATIGUE [None]
  - ANAEMIA [None]
